FAERS Safety Report 23280959 (Version 1)
Quarter: 2023Q4

REPORT INFORMATION
  Report Type: Spontaneous
  Country: US (occurrence: US)
  Receive Date: 20231211
  Receipt Date: 20231211
  Transmission Date: 20240110
  Serious: No
  Sender: FDA-Public Use
  Company Number: US-NOVEN PHARMACEUTICALS, INC.-2023-NOV-US000703

PATIENT
  Age: 20 Year
  Sex: Female

DRUGS (1)
  1. ESTRADIOL [Suspect]
     Active Substance: ESTRADIOL
     Indication: Hormone replacement therapy
     Dosage: 0.075 MG, 3-4 DAYS (SATURDAY AND WEDNESDAY)
     Route: 062
     Dates: start: 2022

REACTIONS (7)
  - Accidental exposure to product [Recovered/Resolved]
  - Adhesive tape use [Unknown]
  - Wrong technique in device usage process [Unknown]
  - Product administration error [Unknown]
  - Device issue [Unknown]
  - Product adhesion issue [Unknown]
  - No adverse event [Unknown]

NARRATIVE: CASE EVENT DATE: 20220101
